FAERS Safety Report 14846827 (Version 1)
Quarter: 2018Q2

REPORT INFORMATION
  Report Type: Spontaneous
  Country: US (occurrence: US)
  Receive Date: 20180504
  Receipt Date: 20180504
  Transmission Date: 20180711
  Serious: Yes (Death)
  Sender: FDA-Public Use
  Company Number: US-PFIZER INC-2015193899

PATIENT
  Age: 88 Year
  Sex: Male

DRUGS (1)
  1. GENOTROPIN [Suspect]
     Active Substance: SOMATROPIN
     Indication: HYPOPITUITARISM
     Dosage: UNK (0.2MG X 2 DAY, THEN 0.3MG SQ DAILY)
     Route: 058
     Dates: start: 20060607

REACTIONS (3)
  - Device battery issue [Unknown]
  - Incorrect dose administered [Unknown]
  - Death [Fatal]
